FAERS Safety Report 14382624 (Version 1)
Quarter: 2018Q1

REPORT INFORMATION
  Report Type: Spontaneous
  Country: US (occurrence: US)
  Receive Date: 20180112
  Receipt Date: 20180112
  Transmission Date: 20180509
  Serious: No
  Sender: FDA-Public Use
  Company Number: US-LUNDBECK-DKLU2036693

PATIENT
  Age: 53 Year
  Sex: Female

DRUGS (1)
  1. NORTHERA [Suspect]
     Active Substance: DROXIDOPA
     Indication: PRODUCT USED FOR UNKNOWN INDICATION
     Dosage: TITRATION COMPLETE
     Route: 048
     Dates: start: 20170822

REACTIONS (5)
  - Joint swelling [Unknown]
  - Swelling face [Unknown]
  - Fall [Unknown]
  - Ligament sprain [Unknown]
  - Contusion [Unknown]

NARRATIVE: CASE EVENT DATE: 20170831
